FAERS Safety Report 5239489-7 (Version None)
Quarter: 2007Q1

REPORT INFORMATION
  Report Type: 
  Country: None (occurrence: None)
  Receive Date: 20070214
  Receipt Date: 20070214
  Transmission Date: 20070707
  Serious: Yes (Other)
  Sender: FDA-Public Use
  Company Number: None

PATIENT
  Age: 42 Year
  Sex: Female

DRUGS (2)
  1. ATRIPLA [Suspect]
     Dosage: QDAY PO   FOR 1 DOSE
     Route: 048
  2. UNKNOWN [Concomitant]

REACTIONS (2)
  - ASTHENIA [None]
  - DYSSTASIA [None]
